FAERS Safety Report 13535991 (Version 1)
Quarter: 2017Q2

REPORT INFORMATION
  Report Type: Spontaneous
  Country: US (occurrence: US)
  Receive Date: 20170511
  Receipt Date: 20170511
  Transmission Date: 20170830
  Serious: No
  Sender: FDA-Public Use
  Company Number: US-AMGEN-USASP2017070112

PATIENT
  Age: 34 Year
  Sex: Female

DRUGS (2)
  1. ENBREL [Suspect]
     Active Substance: ETANERCEPT
     Dosage: UNK
     Route: 065
     Dates: start: 20170423
  2. ENBREL [Suspect]
     Active Substance: ETANERCEPT
     Indication: PRODUCT USED FOR UNKNOWN INDICATION
     Dosage: UNK
     Route: 065

REACTIONS (9)
  - Feeling abnormal [Unknown]
  - Pyrexia [Unknown]
  - Vomiting [Unknown]
  - Oral mucosal eruption [Unknown]
  - Gastroenteritis viral [Unknown]
  - Pain [Unknown]
  - Diarrhoea [Unknown]
  - Pruritus generalised [Unknown]
  - Discomfort [Unknown]

NARRATIVE: CASE EVENT DATE: 2017
